FAERS Safety Report 10352045 (Version 2)
Quarter: 2014Q3

REPORT INFORMATION
  Report Type: Spontaneous
  Country: US (occurrence: US)
  Receive Date: 20140730
  Receipt Date: 20140730
  Transmission Date: 20150326
  Serious: No
  Sender: FDA-Public Use
  Company Number: US-ABBVIE-13P-163-1098635-00

PATIENT
  Age: 55 Year
  Sex: Female
  Weight: 47.67 kg

DRUGS (7)
  1. BIOIDENTICAL ESTROGEN [Concomitant]
     Indication: MENOPAUSE
  2. SYNTHROID [Suspect]
     Active Substance: LEVOTHYROXINE SODIUM
     Indication: HYPOTHYROIDISM
     Dates: start: 201304, end: 20140110
  3. TIROSINT [Suspect]
     Active Substance: LEVOTHYROXINE SODIUM
     Indication: HYPOTHYROIDISM
     Dates: start: 20140110, end: 20140114
  4. BIOIDENTICAL PROGESTERONE [Concomitant]
     Indication: MENOPAUSE
  5. SYNTHROID [Suspect]
     Active Substance: LEVOTHYROXINE SODIUM
     Indication: HYPOTHYROIDISM
     Dosage: 1/2 TAB DAILY
     Route: 048
     Dates: start: 201304, end: 20140110
  6. ESTRADIOL. [Concomitant]
     Active Substance: ESTRADIOL
     Indication: MENOPAUSE
  7. CELEXA [Concomitant]
     Active Substance: CITALOPRAM HYDROBROMIDE
     Indication: DEPRESSION

REACTIONS (9)
  - Nausea [Not Recovered/Not Resolved]
  - Dyspepsia [Not Recovered/Not Resolved]
  - Oral mucosal eruption [Unknown]
  - Rash [Not Recovered/Not Resolved]
  - Tri-iodothyronine decreased [Not Recovered/Not Resolved]
  - Frequent bowel movements [Not Recovered/Not Resolved]
  - Unevaluable event [Not Recovered/Not Resolved]
  - Eyelid oedema [Not Recovered/Not Resolved]
  - Lip swelling [Not Recovered/Not Resolved]

NARRATIVE: CASE EVENT DATE: 201304
